FAERS Safety Report 4502543-9 (Version None)
Quarter: 2004Q4

REPORT INFORMATION
  Report Type: 
  Country: None (occurrence: None)
  Receive Date: 20041112
  Receipt Date: 20041103
  Transmission Date: 20050328
  Serious: Yes (Hospitalization, Other)
  Sender: FDA-Public Use
  Company Number: GBWYE116018OCT04

PATIENT
  Age: 33 Year
  Sex: Female

DRUGS (3)
  1. ADVIL [Suspect]
  2. AMITRIPTYLINE HCL [Suspect]
  3. ANADIN PARACETAMOL (ACETAMINOPHEN, UNSPEC) [Suspect]

REACTIONS (10)
  - ACUTE RESPIRATORY DISTRESS SYNDROME [None]
  - CARDIAC ARREST [None]
  - COMA [None]
  - GRAND MAL CONVULSION [None]
  - HAEMOPHILUS INFECTION [None]
  - INTENTIONAL OVERDOSE [None]
  - LOSS OF CONSCIOUSNESS [None]
  - PNEUMOTHORAX [None]
  - STREPTOCOCCAL INFECTION [None]
  - TACHYCARDIA [None]
